FAERS Safety Report 10184810 (Version 7)
Quarter: 2017Q2

REPORT INFORMATION
  Report Type: Report from Study
  Country: JP (occurrence: JP)
  Receive Date: 20140521
  Receipt Date: 20170621
  Transmission Date: 20170829
  Serious: Yes (Hospitalization)
  Sender: FDA-Public Use
  Company Number: JP-ROCHE-1401043

PATIENT
  Age: 70 Year
  Sex: Male
  Weight: 71 kg

DRUGS (43)
  1. ALOSITOL [Concomitant]
     Active Substance: ALLOPURINOL
     Route: 048
  2. ANCARON [Concomitant]
     Active Substance: AMIODARONE HYDROCHLORIDE
     Route: 048
  3. ANTEBATE [Concomitant]
     Active Substance: BETAMETHASONE DIPROPIONATE
     Dosage: DOSAGE IS UNCERTAIN.
     Route: 065
  4. CANDESARTAN. [Concomitant]
     Active Substance: CANDESARTAN
     Dosage: DOSAGE IS UNCERTAIN.
     Route: 048
  5. PARIET [Concomitant]
     Active Substance: RABEPRAZOLE SODIUM
     Route: 048
  6. BLOPRESS [Concomitant]
     Active Substance: CANDESARTAN CILEXETIL
     Route: 048
  7. REGPARA [Concomitant]
     Active Substance: CINACALCET HYDROCHLORIDE
     Route: 048
  8. METHOXY POLYETHYLENE GLYCOL-EPOETIN BETA [Suspect]
     Active Substance: METHOXY POLYETHYLENE GLYCOL-EPOETIN BETA
     Indication: NEPHROGENIC ANAEMIA
     Route: 042
     Dates: start: 20150325
  9. SELBEX [Concomitant]
     Active Substance: TEPRENONE
     Route: 048
  10. TSUMURA HOCHUEKKITO [Concomitant]
     Dosage: DOSAGE IS UNCERTAIN.
     Route: 048
  11. HIRUDOID OINTMENT [Concomitant]
     Dosage: DOSAGE IS UNCERTAIN.
     Route: 003
  12. PROSTANDIN [Concomitant]
     Dosage: DOSAGE IS UNCERTAIN.
     Route: 003
  13. MAINTATE [Concomitant]
     Active Substance: BISOPROLOL FUMARATE
     Route: 048
  14. RENAGEL [Concomitant]
     Active Substance: SEVELAMER HYDROCHLORIDE
     Dosage: DOSAGE IS UNCERTAIN.
     Route: 048
  15. METHOXY POLYETHYLENE GLYCOL-EPOETIN BETA [Suspect]
     Active Substance: METHOXY POLYETHYLENE GLYCOL-EPOETIN BETA
     Indication: NEPHROGENIC ANAEMIA
     Route: 042
     Dates: start: 20140331, end: 2014
  16. METHOXY POLYETHYLENE GLYCOL-EPOETIN BETA [Suspect]
     Active Substance: METHOXY POLYETHYLENE GLYCOL-EPOETIN BETA
     Indication: NEPHROGENIC ANAEMIA
     Route: 042
     Dates: start: 20141022, end: 2015
  17. ITOROL [Concomitant]
     Active Substance: ISOSORBIDE MONONITRATE
     Dosage: DOSAGE IS UNCERTAIN.
     Route: 065
  18. BAYASPIRIN [Concomitant]
     Active Substance: ASPIRIN
     Route: 048
  19. BERIZYM [Concomitant]
     Active Substance: CELLULASE\DIASTASE\LIPASE
     Route: 048
  20. ARGAMATE [Concomitant]
     Active Substance: CALCIUM POLYSTYRENE SULFONATE
     Route: 048
     Dates: start: 20140129
  21. ADALAT CC [Concomitant]
     Active Substance: NIFEDIPINE
     Dosage: EVENING
     Route: 048
  22. ENSURE [Concomitant]
     Active Substance: AMINO ACIDS\DEXTROSE\ELECTROLYTES NOS\SOYBEAN OIL\VITAMINS
     Dosage: DOSAGE IS UNCERTAIN.
     Route: 048
  23. CONIEL [Concomitant]
     Active Substance: BENIDIPINE HYDROCHLORIDE
     Route: 048
  24. PLAVIX [Concomitant]
     Active Substance: CLOPIDOGREL BISULFATE
     Route: 048
  25. MUCOSTA [Concomitant]
     Active Substance: REBAMIPIDE
     Dosage: DOSAGE IS UNCERTAIN.
     Route: 065
  26. MONILAC [Concomitant]
     Active Substance: LACTULOSE
     Dosage: DOSAGE IS UNCERTAIN.
     Route: 048
  27. CARDENALIN [Concomitant]
     Active Substance: DOXAZOSIN MESYLATE
     Dosage: DOSAGE IS UNCERTAIN.
     Route: 065
  28. FOIPAN [Concomitant]
     Active Substance: CAMOSTAT MESYLATE
     Dosage: DOSAGE IS UNCERTAIN.
     Route: 065
  29. METHOXY POLYETHYLENE GLYCOL-EPOETIN BETA [Suspect]
     Active Substance: METHOXY POLYETHYLENE GLYCOL-EPOETIN BETA
     Indication: NEPHROGENIC ANAEMIA
     Dosage: DOSE INCREASED
     Route: 042
     Dates: start: 20140203, end: 2014
  30. ADALAT [Concomitant]
     Active Substance: NIFEDIPINE
     Dosage: DOSAGE IS UNCERTAIN.
     Route: 065
  31. ALESION [Concomitant]
     Active Substance: EPINASTINE HYDROCHLORIDE
     Route: 048
  32. SENNOSIDE [Concomitant]
     Active Substance: SENNOSIDES
     Dosage: DOSAGE IS UNCERTAIN.
     Route: 065
  33. NIFEDIPINE CR [Concomitant]
     Active Substance: NIFEDIPINE
     Dosage: DOSAGE IS UNCERTAIN.
     Route: 065
  34. NEXIUM [Concomitant]
     Active Substance: ESOMEPRAZOLE MAGNESIUM
     Dosage: DOSAGE IS UNCERTAIN.
     Route: 048
  35. PREDONINE [Concomitant]
     Active Substance: PREDNISOLONE
     Route: 048
  36. ALOSENN [Concomitant]
     Active Substance: SENNA LEAF
     Route: 048
     Dates: start: 20140312
  37. ARCRANE [Concomitant]
     Dosage: DOSAGE IS UNCERTAIN.
     Route: 048
  38. CALTAN [Concomitant]
     Active Substance: CALCIUM CARBONATE
     Route: 048
  39. LOCHOL (FLUVASTATIN) [Concomitant]
     Route: 048
  40. FESIN (JAPAN) [Concomitant]
     Active Substance: IRON SUCROSE
     Dosage: DOSAGE IS UNCERTAIN.
     Route: 065
  41. AMLODIPINE [Concomitant]
     Active Substance: AMLODIPINE BESYLATE
     Dosage: DOSAGE IS UNCERTAIN.
     Route: 048
  42. HERBAL NOS [Concomitant]
     Active Substance: HERBALS
     Dosage: DOSAGE IS UNCERTAIN.
     Route: 048
  43. PREDNISOLONE. [Concomitant]
     Active Substance: PREDNISOLONE
     Dosage: DOSAGE IS UNCERTAIN.
     Route: 048

REACTIONS (7)
  - Diverticulitis [Recovering/Resolving]
  - Diverticulitis [Recovering/Resolving]
  - Melaena [Recovering/Resolving]
  - Intestinal obstruction [Recovered/Resolved]
  - Retroperitoneal abscess [Unknown]
  - Hepatic cyst infection [Recovering/Resolving]
  - Haemorrhoids [Unknown]

NARRATIVE: CASE EVENT DATE: 20140314
